FAERS Safety Report 12874723 (Version 1)
Quarter: 2016Q4

REPORT INFORMATION
  Report Type: Spontaneous
  Country: FR (occurrence: FR)
  Receive Date: 20161021
  Receipt Date: 20161021
  Transmission Date: 20170207
  Serious: Yes (Death, Hospitalization, Other)
  Sender: FDA-Public Use
  Company Number: FR-ASTRAZENECA-2016SF10514

PATIENT
  Age: 167 Month
  Sex: Female

DRUGS (2)
  1. XEROQUEL [Suspect]
     Active Substance: QUETIAPINE FUMARATE
     Route: 048
  2. ROACCUTANE [Suspect]
     Active Substance: ISOTRETINOIN
     Indication: ACNE
     Route: 048
     Dates: start: 20021209, end: 200305

REACTIONS (5)
  - Brief psychotic disorder with marked stressors [Not Recovered/Not Resolved]
  - Dyskinesia [Unknown]
  - Completed suicide [Fatal]
  - Depression [Fatal]
  - Decreased appetite [Unknown]

NARRATIVE: CASE EVENT DATE: 200212
